FAERS Safety Report 6722771-1 (Version None)
Quarter: 2010Q2

REPORT INFORMATION
  Report Type: 
  Country: None (occurrence: None)
  Receive Date: 20100511
  Receipt Date: 20050503
  Transmission Date: 20101027
  Serious: Yes (Hospitalization)
  Sender: FDA-Public Use
  Company Number: 2009-3013

PATIENT
  Age: 67 Year
  Sex: Male

DRUGS (3)
  1. APO-GO AMPOULES (APO-GO) (APOMORPHINE HYDROCHLORIDE) (APOMORPHINE HYDR [Suspect]
     Indication: PARKINSON'S DISEASE
     Dosage: 36 MG (3 MG,12 IN 24 HR),SUBCUTANEOUS
     Route: 058
     Dates: start: 20050404, end: 20050406
  2. SINEMET [Concomitant]
  3. SINEMET CR [Concomitant]

REACTIONS (4)
  - CONFUSIONAL STATE [None]
  - HALLUCINATION [None]
  - PARANOIA [None]
  - RESTLESSNESS [None]
